FAERS Safety Report 5988464-3 (Version None)
Quarter: 2008Q4

REPORT INFORMATION
  Report Type: 
  Country: None (occurrence: None)
  Receive Date: 20081210
  Receipt Date: 20081203
  Transmission Date: 20090506
  Serious: Yes (Other)
  Sender: FDA-Public Use
  Company Number: BR-ASTRAZENECA-2008UW10718

PATIENT
  Age: 48 Year
  Sex: Female
  Weight: 63 kg

DRUGS (1)
  1. ZOLADEX [Suspect]
     Indication: LEIOMYOMA
     Route: 058
     Dates: start: 20080404

REACTIONS (15)
  - ABDOMINAL PAIN [None]
  - ALOPECIA [None]
  - APPLICATION SITE PAIN [None]
  - BLOOD PRESSURE DECREASED [None]
  - CHROMATURIA [None]
  - HEADACHE [None]
  - NAUSEA [None]
  - NODULE [None]
  - PAIN IN EXTREMITY [None]
  - PRURITUS [None]
  - PYREXIA [None]
  - RASH [None]
  - URINE ODOUR ABNORMAL [None]
  - VAGINAL DISCHARGE [None]
  - WEIGHT DECREASED [None]
